FAERS Safety Report 5023131-4 (Version None)
Quarter: 2006Q2

REPORT INFORMATION
  Report Type: 
  Country: None (occurrence: None)
  Receive Date: 20060605
  Receipt Date: 20060530
  Transmission Date: 20061013
  Serious: Yes (Life-Threatening, Congenital Anomaly, Other)
  Sender: FDA-Public Use
  Company Number: 200612148GDS

PATIENT
  Age: 33 Year
  Sex: Female
  Weight: 50 kg

DRUGS (2)
  1. CLOTRIMAZOLE [Suspect]
     Indication: CANDIDIASIS
     Dosage: 500 MG, TOTAL DAILY, VAGINAL
     Route: 067
     Dates: start: 20050507
  2. CLOTRIMAZOLE [Suspect]
     Indication: GENITAL PRURITUS FEMALE
     Dosage: 500 MG, TOTAL DAILY, VAGINAL
     Route: 067
     Dates: start: 20050507

REACTIONS (6)
  - ABDOMINAL PAIN [None]
  - DRUG EXPOSURE DURING PREGNANCY [None]
  - FOETAL MOVEMENTS DECREASED [None]
  - INTRA-UTERINE DEATH [None]
  - PREMATURE SEPARATION OF PLACENTA [None]
  - VAGINAL HAEMORRHAGE [None]
